FAERS Safety Report 7361969-9 (Version None)
Quarter: 2011Q1

REPORT INFORMATION
  Report Type: 
  Country: None (occurrence: None)
  Receive Date: 20110318
  Receipt Date: 20110308
  Transmission Date: 20110831
  Serious: Yes (Death)
  Sender: FDA-Public Use
  Company Number: US-ACTELION-A-US2010-36686

PATIENT

DRUGS (1)
  1. TRACLEER [Suspect]
     Indication: PULMONARY ARTERIAL HYPERTENSION
     Dosage: 125 MG, BID
     Route: 048
     Dates: start: 20031201, end: 20100510

REACTIONS (4)
  - PULMONARY HYPERTENSION [None]
  - INTESTINAL MASS [None]
  - FLUID OVERLOAD [None]
  - RIGHT VENTRICULAR FAILURE [None]
